FAERS Safety Report 6055687-7 (Version None)
Quarter: 2009Q1

REPORT INFORMATION
  Report Type: 
  Country: None (occurrence: None)
  Receive Date: 20090128
  Receipt Date: 20090127
  Transmission Date: 20090719
  Serious: Yes (Hospitalization)
  Sender: FDA-Public Use
  Company Number: DE-WYE-H06020708

PATIENT
  Sex: Male
  Weight: 84 kg

DRUGS (11)
  1. RAPAMUNE [Suspect]
     Indication: PROPHYLAXIS AGAINST TRANSPLANT REJECTION
     Route: 048
     Dates: start: 20071227, end: 20080908
  2. PANTOPRAZOLE SODIUM [Concomitant]
     Dosage: 40 MG (1-0-1)
     Route: 065
  3. TORSEMIDE [Concomitant]
     Indication: DIURETIC THERAPY
     Dosage: 5 MG (1-0-0)
     Route: 065
  4. AMLODIPINE [Concomitant]
     Indication: HYPERTENSION
     Dosage: 5 MG 0-0-1
  5. LAMIVUDINE [Concomitant]
     Indication: HEPATITIS B
     Dosage: 150 MG (1-0-0)
     Route: 065
  6. H-BIG [Concomitant]
     Dosage: ^5 X 2000 IEU^
     Route: 065
  7. URSO FALK [Concomitant]
     Dosage: 400 MG (1-1-1)
     Route: 065
  8. ACETYLSALICYLIC ACID [Concomitant]
     Dosage: 150 MG (1-0-0)
     Route: 065
  9. TACROLIMUS [Concomitant]
     Indication: PROPHYLAXIS AGAINST TRANSPLANT REJECTION
     Dosage: 2 MG 1-0-1
     Route: 065
     Dates: start: 20071107
  10. DELIX [Concomitant]
     Dosage: 2.5 MG (1-0-0)
     Route: 065
  11. DELIX [Concomitant]
     Dosage: 8 MG (1-0-0)
     Route: 065

REACTIONS (5)
  - ERYSIPELAS [None]
  - MOUTH ULCERATION [None]
  - OEDEMA [None]
  - PROTEINURIA [None]
  - SKIN ULCER [None]
